FAERS Safety Report 19420831 (Version 2)
Quarter: 2021Q3

REPORT INFORMATION
  Report Type: Spontaneous
  Country: IT (occurrence: IT)
  Receive Date: 20210616
  Receipt Date: 20210722
  Transmission Date: 20211014
  Serious: Yes (Hospitalization)
  Sender: FDA-Public Use
  Company Number: IT-AUROBINDO-AUR-APL-2021-024554

PATIENT
  Age: 65 Year
  Sex: Female
  Weight: 55 kg

DRUGS (5)
  1. DELORAZEPAM [Concomitant]
     Active Substance: DELORAZEPAM
     Indication: ANXIETY
     Dosage: 2 MILLIGRAM
     Route: 042
  2. VORTIOXETINE. [Suspect]
     Active Substance: VORTIOXETINE
     Indication: MENTAL DISORDER
     Dosage: 5 MILLIGRAM, ONCE A DAY
     Route: 048
     Dates: start: 202010
  3. VORTIOXETINE. [Suspect]
     Active Substance: VORTIOXETINE
     Indication: MENTAL DISORDER
     Dosage: 10 MILLIGRAM, ONCE A DAY
     Route: 048
  4. CITALOPRAM ORAL DROPS [Suspect]
     Active Substance: CITALOPRAM HYDROBROMIDE
     Indication: MENTAL DISORDER
     Dosage: 8 MILLIGRAM, ONCE A DAY
     Route: 048
     Dates: start: 202006, end: 202010
  5. ZOLPIDEM [Concomitant]
     Active Substance: ZOLPIDEM TARTRATE
     Indication: INSOMNIA
     Dosage: 10 MILLIGRAM
     Route: 048

REACTIONS (7)
  - Therapeutic response decreased [Unknown]
  - Flat affect [Unknown]
  - Product use in unapproved indication [Unknown]
  - Restlessness [Unknown]
  - Prescribed underdose [Unknown]
  - Nausea [Recovered/Resolved]
  - Akathisia [Unknown]
